FAERS Safety Report 16070692 (Version 3)
Quarter: 2019Q2

REPORT INFORMATION
  Report Type: Spontaneous
  Country: BR (occurrence: BR)
  Receive Date: 20190314
  Receipt Date: 20190505
  Transmission Date: 20190711
  Serious: Yes (Hospitalization, Other)
  Sender: FDA-Public Use
  Company Number: BR-ABBVIE-19K-020-2696813-00

PATIENT
  Age: 76 Year
  Sex: Female
  Weight: 55 kg

DRUGS (3)
  1. HUMIRA [Suspect]
     Active Substance: ADALIMUMAB
     Indication: PSORIATIC ARTHROPATHY
  2. COVERSYL PLUS [Concomitant]
     Active Substance: INDAPAMIDE\PERINDOPRIL
     Indication: HYPERTENSION
  3. HUMIRA [Suspect]
     Active Substance: ADALIMUMAB
     Indication: PSORIASIS
     Route: 058
     Dates: start: 20180621, end: 201903

REACTIONS (6)
  - Metastases to liver [Unknown]
  - Jaundice [Unknown]
  - Liver disorder [Unknown]
  - Gallbladder cancer [Unknown]
  - Lymphadenopathy [Unknown]
  - Biliary neoplasm [Not Recovered/Not Resolved]

NARRATIVE: CASE EVENT DATE: 20190301
